FAERS Safety Report 18241604 (Version 1)
Quarter: 2020Q3

REPORT INFORMATION
  Report Type: Spontaneous
  Country: US (occurrence: US)
  Receive Date: 20200907
  Receipt Date: 20200907
  Transmission Date: 20201103
  Serious: Yes (Other)
  Sender: FDA-Public Use
  Company Number: None

PATIENT
  Age: 40 Year
  Sex: Male
  Weight: 81 kg

DRUGS (1)
  1. BRIGHTSCIENCE (BRIGHT SCIENCE) CITRUS FRESH ALCOHOL HAND SANITIZER GEL [Suspect]
     Active Substance: ALCOHOL
     Indication: COVID-19 PROPHYLAXIS
     Dosage: ?          QUANTITY:1 SQUIRT;?
     Route: 061
     Dates: start: 20200904, end: 20200904

REACTIONS (2)
  - Headache [None]
  - Eye irritation [None]

NARRATIVE: CASE EVENT DATE: 20200904
